FAERS Safety Report 7455666-9 (Version None)
Quarter: 2011Q2

REPORT INFORMATION
  Report Type: 
  Country: None (occurrence: None)
  Receive Date: 20110503
  Receipt Date: 20110419
  Transmission Date: 20111010
  Serious: Yes (Death)
  Sender: FDA-Public Use
  Company Number: DE-ROCHE-773751

PATIENT
  Sex: Male
  Weight: 75 kg

DRUGS (3)
  1. VINORELBIN [Concomitant]
     Dates: start: 20101011, end: 20110321
  2. BEVACIZUMAB [Suspect]
     Dosage: DOSE: 15
     Route: 065
     Dates: start: 20101011, end: 20110321
  3. CISPLATIN [Concomitant]
     Dates: start: 20101011, end: 20110321

REACTIONS (1)
  - NO THERAPEUTIC RESPONSE [None]
